FAERS Safety Report 14115848 (Version 2)
Quarter: 2017Q4

REPORT INFORMATION
  Report Type: Spontaneous
  Country: US (occurrence: US)
  Receive Date: 20171023
  Receipt Date: 20171122
  Transmission Date: 20180321
  Serious: Yes (Other)
  Sender: FDA-Public Use
  Company Number: US-ELI_LILLY_AND_COMPANY-US201710007822

PATIENT
  Age: 73 Year
  Sex: Male

DRUGS (4)
  1. LARTRUVO [Suspect]
     Active Substance: OLARATUMAB
     Indication: SOFT TISSUE SARCOMA
     Dosage: 12 MG/KG, CYCLICAL
     Route: 065
     Dates: start: 20171005
  2. LARTRUVO [Suspect]
     Active Substance: OLARATUMAB
     Dosage: 12 MG/KG, CYCLICAL
     Route: 065
     Dates: start: 20171019
  3. DOXORUBICIN [Suspect]
     Active Substance: DOXORUBICIN
     Indication: PRODUCT USED FOR UNKNOWN INDICATION
  4. LARTRUVO [Suspect]
     Active Substance: OLARATUMAB
     Dosage: 12 MG/KG, CYCLICAL
     Route: 065
     Dates: start: 20171102

REACTIONS (4)
  - Abdominal pain [Recovered/Resolved]
  - Musculoskeletal pain [Recovered/Resolved]
  - White blood cell count decreased [Unknown]
  - Neutrophil count decreased [Recovered/Resolved]

NARRATIVE: CASE EVENT DATE: 20171012
